FAERS Safety Report 5663676-7 (Version None)
Quarter: 2008Q1

REPORT INFORMATION
  Report Type: 
  Country: None (occurrence: None)
  Receive Date: 20080313
  Receipt Date: 20080131
  Transmission Date: 20080703
  Serious: Yes (Death, Life-Threatening, Hospitalization)
  Sender: FDA-Public Use
  Company Number: NL-GENENTECH-255723

PATIENT
  Sex: Male

DRUGS (13)
  1. RITUXIMAB [Suspect]
     Indication: ANTI-NEUTROPHIL CYTOPLASMIC ANTIBODY POSITIVE VASCULITIS
     Route: 042
     Dates: start: 20070315
  2. STEROIDS (UNK INGREDIENTS) [Concomitant]
     Indication: DRUG USE FOR UNKNOWN INDICATION
     Dosage: 5 MG, UNK
  3. COLISTIN SULFATE [Concomitant]
     Indication: DRUG USE FOR UNKNOWN INDICATION
     Dosage: 225 MG, X3
     Route: 048
  4. PANTOZOL [Concomitant]
     Indication: DRUG USE FOR UNKNOWN INDICATION
     Dosage: 40 MG, UNK
  5. ISONIAZID [Concomitant]
     Indication: DRUG USE FOR UNKNOWN INDICATION
     Dosage: 300 ML, UNK
  6. PYRIDOXINE [Concomitant]
     Indication: DRUG USE FOR UNKNOWN INDICATION
  7. BURINEX [Concomitant]
     Indication: DRUG USE FOR UNKNOWN INDICATION
  8. TAMSULOSIN HCL [Concomitant]
     Indication: DRUG USE FOR UNKNOWN INDICATION
  9. CALCIUM [Concomitant]
     Indication: DRUG USE FOR UNKNOWN INDICATION
  10. NEORECORMON [Concomitant]
     Indication: DRUG USE FOR UNKNOWN INDICATION
  11. COMBIVENT [Concomitant]
     Indication: DRUG USE FOR UNKNOWN INDICATION
  12. CO-TRIMAZOLE [Concomitant]
     Indication: DRUG USE FOR UNKNOWN INDICATION
  13. BACTROBAN [Concomitant]
     Indication: DRUG USE FOR UNKNOWN INDICATION

REACTIONS (7)
  - CARDIAC DISORDER [None]
  - DIARRHOEA [None]
  - HYPOGAMMAGLOBULINAEMIA [None]
  - MULTI-ORGAN FAILURE [None]
  - PNEUMONIA [None]
  - RENAL FAILURE [None]
  - RESPIRATORY FAILURE [None]
